FAERS Safety Report 11832218 (Version 3)
Quarter: 2016Q1

REPORT INFORMATION
  Report Type: Spontaneous
  Country: US (occurrence: US)
  Receive Date: 20151214
  Receipt Date: 20160106
  Transmission Date: 20160525
  Serious: Yes (Death, Hospitalization)
  Sender: FDA-Public Use
  Company Number: US-UNITED THERAPEUTICS-UNT-2015-015556

PATIENT
  Age: 87 Year
  Sex: Female
  Weight: 44.44 kg

DRUGS (2)
  1. TYVASO [Suspect]
     Active Substance: TREPROSTINIL
     Indication: PULMONARY HYPERTENSION
     Dosage: 18-54 ?G, QID
     Dates: start: 20130828
  2. SILDENAFIL. [Concomitant]
     Active Substance: SILDENAFIL
     Indication: PRODUCT USED FOR UNKNOWN INDICATION

REACTIONS (5)
  - Lower limb fracture [Unknown]
  - Hypotension [Unknown]
  - Respiratory failure [Fatal]
  - Haemoptysis [Unknown]
  - Fall [Unknown]

NARRATIVE: CASE EVENT DATE: 201512
